FAERS Safety Report 4921582-7 (Version None)
Quarter: 2006Q1

REPORT INFORMATION
  Report Type: 
  Country: None (occurrence: None)
  Receive Date: 20060223
  Receipt Date: 20060223
  Transmission Date: 20060701
  Serious: Yes (Hospitalization)
  Sender: FDA-Public Use
  Company Number: None

PATIENT
  Age: 24 Year
  Sex: Male
  Weight: 158.759 kg

DRUGS (1)
  1. NARDIL [Suspect]
     Indication: SOCIAL PHOBIA
     Dosage: 30 MG   TID
     Dates: start: 20020510, end: 20050221

REACTIONS (4)
  - ANXIETY [None]
  - DEPRESSION [None]
  - DRUG EFFECT DECREASED [None]
  - PHARMACEUTICAL PRODUCT COMPLAINT [None]
